FAERS Safety Report 4592703-3 (Version None)
Quarter: 2005Q1

REPORT INFORMATION
  Report Type: 
  Country: None (occurrence: None)
  Receive Date: 20050228
  Receipt Date: 20050118
  Transmission Date: 20050727
  Serious: Yes (Hospitalization, Other)
  Sender: FDA-Public Use
  Company Number: ES-AMGEN-UK108578

PATIENT
  Sex: Male

DRUGS (11)
  1. ARANESP [Suspect]
     Indication: DIALYSIS
     Route: 058
     Dates: start: 20040301
  2. CYCLOSPORINE [Concomitant]
     Route: 048
     Dates: start: 20010101, end: 20041222
  3. CELLCEPT [Concomitant]
     Route: 048
     Dates: start: 20010101, end: 20041001
  4. PREDNISONE [Concomitant]
     Route: 048
     Dates: start: 20010101
  5. TORSEMIDE [Concomitant]
     Route: 048
  6. RANITIDINE [Concomitant]
     Route: 048
  7. ATORVASTATIN [Concomitant]
     Route: 048
  8. CARVEDILOL [Concomitant]
     Route: 065
  9. CLOMIPRAMINE HCL [Concomitant]
     Route: 065
     Dates: end: 20041222
  10. LORAZEPAM [Concomitant]
     Route: 065
     Dates: end: 20041222
  11. ALLOPURINOL [Concomitant]
     Route: 065

REACTIONS (21)
  - ANAEMIA [None]
  - APLASIA PURE RED CELL [None]
  - ASTHENIA [None]
  - CARDIAC MURMUR [None]
  - CYTOMEGALOVIRUS INFECTION [None]
  - DYSPNOEA [None]
  - EPSTEIN-BARR VIRUS INFECTION [None]
  - GAMMOPATHY [None]
  - HAEMATURIA [None]
  - HEART SOUNDS ABNORMAL [None]
  - HERPES SIMPLEX [None]
  - HERPES ZOSTER [None]
  - HYPERPARATHYROIDISM [None]
  - MALNUTRITION [None]
  - MONOCLONAL IMMUNOGLOBULIN PRESENT [None]
  - OEDEMA PERIPHERAL [None]
  - OSTEITIS [None]
  - RALES [None]
  - RENAL CELL CARCINOMA STAGE UNSPECIFIED [None]
  - RENAL IMPAIRMENT [None]
  - TRANSPLANT REJECTION [None]
